FAERS Safety Report 24965343 (Version 2)
Quarter: 2025Q1

REPORT INFORMATION
  Report Type: Spontaneous
  Country: CA (occurrence: CA)
  Receive Date: 20250213
  Receipt Date: 20250219
  Transmission Date: 20250408
  Serious: No
  Sender: PFIZER
  Company Number: CA-TAKEDA-2024TUS051881

PATIENT
  Age: 15 Year
  Sex: Female

DRUGS (2)
  1. PANTOPRAZOLE [Suspect]
     Active Substance: PANTOPRAZOLE
  2. COLCHICINE [Suspect]
     Active Substance: COLCHICINE
     Route: 048

REACTIONS (1)
  - Intentional overdose [Unknown]
